FAERS Safety Report 5903530-6 (Version None)
Quarter: 2008Q3

REPORT INFORMATION
  Report Type: 
  Country: None (occurrence: None)
  Receive Date: 20080930
  Receipt Date: 20080918
  Transmission Date: 20090109
  Serious: Yes (Hospitalization, Other)
  Sender: FDA-Public Use
  Company Number: BR-PFIZER INC-2007052590

PATIENT
  Sex: Female
  Weight: 61 kg

DRUGS (7)
  1. DOSTINEX [Suspect]
     Indication: HYPERPROLACTINAEMIA
     Route: 048
     Dates: start: 20070501
  2. SERTRALINE [Suspect]
     Indication: INSOMNIA
     Route: 048
  3. ALL OTHER NON-THERAPEUTIC PRODUCTS [Suspect]
  4. LEXOTAN [Concomitant]
  5. NORTRIPTYLINE HCL [Concomitant]
  6. TRILEPTAL [Concomitant]
  7. FENERGAN [Concomitant]

REACTIONS (20)
  - BLINDNESS [None]
  - CARDIAC DISORDER [None]
  - CHEMOTHERAPY [None]
  - COORDINATION ABNORMAL [None]
  - DRUG INEFFECTIVE FOR UNAPPROVED INDICATION [None]
  - DYSPNOEA [None]
  - EYE DISORDER [None]
  - EYE PAIN [None]
  - FATIGUE [None]
  - HEADACHE [None]
  - HYPERGLYCAEMIA [None]
  - HYPERTENSION [None]
  - HYPOTHYROIDISM [None]
  - MALAISE [None]
  - MEMORY IMPAIRMENT [None]
  - NAUSEA [None]
  - NEOPLASM PROGRESSION [None]
  - TOOTH DISORDER [None]
  - WEIGHT DECREASED [None]
  - WEIGHT INCREASED [None]
